FAERS Safety Report 24288123 (Version 1)
Quarter: 2024Q3

REPORT INFORMATION
  Report Type: Spontaneous
  Country: US (occurrence: US)
  Receive Date: 20240905
  Receipt Date: 20240905
  Transmission Date: 20241017
  Serious: No
  Sender: MERCK
  Company Number: US-009507513-2408USA003775

PATIENT
  Sex: Female
  Weight: 79.4 kg

DRUGS (20)
  1. WINREVAIR [Suspect]
     Active Substance: SOTATERCEPT-CSRK
     Indication: Product used for unknown indication
     Dosage: UNK
     Dates: start: 2024
  2. TREPROSTINIL [Suspect]
     Active Substance: TREPROSTINIL
     Indication: Pulmonary arterial hypertension
     Dosage: 64 MICROGRAM, QID
     Dates: start: 2024
  3. TYVASO DPI [Suspect]
     Active Substance: TREPROSTINIL
     Indication: Pulmonary arterial hypertension
     Dosage: UNK
     Dates: start: 20240422
  4. VITAMINS NOS [Concomitant]
     Active Substance: VITAMINS
  5. FUROSEMIDE [Concomitant]
     Active Substance: FUROSEMIDE
  6. OMEPRAZOLE [Concomitant]
     Active Substance: OMEPRAZOLE
  7. IBUPROFEN [Concomitant]
     Active Substance: IBUPROFEN
  8. POTASSIUM CHLORIDE [Concomitant]
     Active Substance: POTASSIUM CHLORIDE
  9. LACTULOSE [Concomitant]
     Active Substance: LACTULOSE
  10. ALBUTEROL SULFATE [Concomitant]
     Active Substance: ALBUTEROL SULFATE
  11. VITAMIN D3 [Concomitant]
     Active Substance: CHOLECALCIFEROL
  12. TADALAFIL [Concomitant]
     Active Substance: TADALAFIL
  13. IRON CHEWS [Concomitant]
     Active Substance: IRON PENTACARBONYL
  14. FLUTICASONE PROPIONATE [Concomitant]
     Active Substance: FLUTICASONE PROPIONATE
  15. SPIRONOLACTONE [Concomitant]
     Active Substance: SPIRONOLACTONE
  16. OXYGEN [Concomitant]
     Active Substance: OXYGEN
  17. BENADRYL ALLERGY [Concomitant]
     Active Substance: DIPHENHYDRAMINE HYDROCHLORIDE
  18. METHADONE INTENSOL [Concomitant]
  19. AMBRISENTAN [Concomitant]
     Active Substance: AMBRISENTAN
  20. OMEGA [OMEPRAZOLE SODIUM] [Concomitant]

REACTIONS (1)
  - Headache [Unknown]

NARRATIVE: CASE EVENT DATE: 20240101
